FAERS Safety Report 5614399-1 (Version None)
Quarter: 2008Q1

REPORT INFORMATION
  Report Type: 
  Country: None (occurrence: None)
  Receive Date: 20080111
  Receipt Date: 20070928
  Transmission Date: 20080703
  Serious: Yes (Other)
  Sender: FDA-Public Use
  Company Number: HQWYE588225AUG04

PATIENT
  Age: 63 Year
  Sex: Female
  Weight: 77.18 kg

DRUGS (5)
  1. PREMPRO [Suspect]
     Indication: MENOPAUSE
     Dosage: 0.625MG/2.5MG TABLET DAILY, ORAL
     Route: 048
     Dates: start: 19940101, end: 19990601
  2. MEDROXYPROGESTERONE [Suspect]
     Dosage: ORAL
     Route: 048
     Dates: start: 19960905, end: 19961201
  3. PREMARIN [Suspect]
     Indication: MENOPAUSAL SYMPTOMS
     Dosage: ORAL ; ORAL
     Route: 048
     Dates: start: 19900101, end: 19920101
  4. PREMARIN [Suspect]
     Indication: MENOPAUSAL SYMPTOMS
     Dosage: ORAL ; ORAL
     Route: 048
     Dates: start: 19970101, end: 19970501
  5. ATENOLOL [Concomitant]

REACTIONS (1)
  - BREAST CANCER [None]
